FAERS Safety Report 9848040 (Version 1)
Quarter: 2014Q1

REPORT INFORMATION
  Report Type: Spontaneous
  Country: US (occurrence: None)
  Receive Date: 20140123
  Receipt Date: 20140123
  Transmission Date: 20141002
  Serious: No
  Sender: FDA-Public Use
  Company Number: None

PATIENT
  Age: 69 Year
  Sex: Male

DRUGS (1)
  1. DAPTOMYCIN [Suspect]
     Route: 042
     Dates: start: 20130508, end: 20130513

REACTIONS (1)
  - Necrotising fasciitis [None]
